FAERS Safety Report 9848258 (Version 2)
Quarter: 2014Q1

REPORT INFORMATION
  Report Type: Spontaneous
  Country: US (occurrence: US)
  Receive Date: 20140128
  Receipt Date: 20140310
  Transmission Date: 20141002
  Serious: No
  Sender: FDA-Public Use
  Company Number: US-PFIZER INC-2014024498

PATIENT
  Age: 75 Year
  Sex: Female
  Weight: 84.81 kg

DRUGS (14)
  1. LYRICA [Suspect]
     Indication: NEUROPATHY PERIPHERAL
     Dosage: 50 MG, 2X/DAY
     Route: 048
     Dates: start: 20140120, end: 20140122
  2. LYRICA [Suspect]
     Dosage: 25 MG, 1X/DAY
     Route: 048
     Dates: start: 20140124, end: 20140223
  3. MELOXICAM [Concomitant]
     Dosage: 15 MG (7.5 MG, 2 TABLETS EVERY DAY), 1X/DAY
     Route: 048
  4. IRBESARTAN [Concomitant]
     Dosage: 300 MG, 1X/DAY
     Route: 048
  5. CLOPIDOGREL [Concomitant]
     Dosage: 75 MG, 1X/DAY
     Route: 048
     Dates: start: 20140109
  6. NEXIUM [Concomitant]
     Dosage: 40 MG, 1X/DAY
     Route: 048
  7. SYNTHROID [Concomitant]
     Dosage: 125 UG, 1X/DAY
     Route: 048
  8. AMLODIPINE [Concomitant]
     Dosage: 10 MG, 1X/DAY
     Route: 048
  9. AMLODIPINE [Concomitant]
     Dosage: 5 MG, 1X/DAY
     Route: 048
  10. SINGULAIR [Concomitant]
     Dosage: 10 MG, 1X/DAY
  11. ZITA [Concomitant]
     Dosage: UNK, 1X/DAY
  12. TRAZODONE [Concomitant]
     Dosage: 50 MG, 1X/DAY
     Route: 048
  13. AMOXICILLIN [Concomitant]
     Dosage: 500 MG, UNK
  14. ZETIA [Concomitant]
     Dosage: 10 MG, EVERYDAY
     Route: 048

REACTIONS (1)
  - Feeling abnormal [Unknown]
